FAERS Safety Report 7717447-8 (Version None)
Quarter: 2011Q3

REPORT INFORMATION
  Report Type: 
  Country: None (occurrence: None)
  Receive Date: 20110823
  Receipt Date: 20110419
  Transmission Date: 20111222
  Serious: Yes (Hospitalization)
  Sender: FDA-Public Use
  Company Number: 20110419CINRY1959

PATIENT
  Age: 32 Year
  Sex: Female

DRUGS (4)
  1. AMBIEN [Concomitant]
  2. CHOLESTYRAMINE (COLESTYRAMINE) [Concomitant]
  3. CINRYZE [Suspect]
     Indication: HEREDITARY ANGIOEDEMA
     Dosage: (1500 UNIT, ONCE), INTRAVENOUS, (500 UNIT, ONCE), INTRAVENOUS
     Route: 042
     Dates: start: 20110413, end: 20110413
  4. CINRYZE [Suspect]
     Indication: HEREDITARY ANGIOEDEMA
     Dosage: (1500 UNIT, ONCE), INTRAVENOUS, (500 UNIT, ONCE), INTRAVENOUS
     Route: 042
     Dates: start: 20110419, end: 20110419

REACTIONS (2)
  - HEREDITARY ANGIOEDEMA [None]
  - OFF LABEL USE [None]
